FAERS Safety Report 6828430-9 (Version None)
Quarter: 2010Q3

REPORT INFORMATION
  Report Type: 
  Country: None (occurrence: None)
  Receive Date: 20100708
  Receipt Date: 20100708
  Transmission Date: 20110219
  Serious: Yes (Hospitalization)
  Sender: FDA-Public Use
  Company Number: None

PATIENT
  Sex: Female
  Weight: 74.8435 kg

DRUGS (2)
  1. YASMIN [Suspect]
     Indication: CONTRACEPTION
     Dosage: ONE ACTIVE PILL A DAY ONCE A DAY PO
     Route: 048
     Dates: start: 20040801, end: 20091001
  2. OCELLA 3MG/ .03MG BAYER HEALTHCARE PHARMACEUTICALS [Suspect]
     Indication: CONTRACEPTION
     Dosage: ONE ACTIVE PILL A DAY ONCE A DAY PO
     Route: 048
     Dates: start: 20040801, end: 20091001

REACTIONS (3)
  - CHOLECYSTITIS INFECTIVE [None]
  - CHOLELITHIASIS [None]
  - PURULENCE [None]
